FAERS Safety Report 9218559 (Version 1)
Quarter: 2013Q2

REPORT INFORMATION
  Report Type: Spontaneous
  Country: GB (occurrence: GB)
  Receive Date: 20130409
  Receipt Date: 20130409
  Transmission Date: 20140414
  Serious: Yes (Death)
  Sender: FDA-Public Use
  Company Number: GB-ACCORD-017091

PATIENT
  Age: 71 Year
  Sex: Female
  Weight: 56.9 kg

DRUGS (5)
  1. ORAMORPH [Concomitant]
  2. XELODA [Suspect]
     Indication: COLON CANCER METASTATIC
     Route: 048
     Dates: start: 20130213, end: 20130221
  3. AVASTIN [Suspect]
     Indication: COLON CANCER METASTATIC
     Route: 042
     Dates: start: 20130213, end: 20130213
  4. IRINOTECAN HYDROCHLORIDE [Suspect]
     Indication: COLON CANCER METASTATIC
     Route: 042
     Dates: start: 20130213, end: 20130213
  5. LANSOPRAZOLE [Concomitant]

REACTIONS (2)
  - Pulmonary embolism [Fatal]
  - Myocardial ischaemia [Fatal]
